FAERS Safety Report 5123988-2 (Version None)
Quarter: 2006Q3

REPORT INFORMATION
  Report Type: 
  Country: None (occurrence: None)
  Receive Date: 20060811
  Receipt Date: 20060421
  Transmission Date: 20061208
  Serious: No
  Sender: FDA-Public Use
  Company Number: S06-USA-01626-01

PATIENT
  Age: 78 Year
  Sex: Male

DRUGS (11)
  1. NAMENDA [Suspect]
     Indication: DEMENTIA ALZHEIMER'S TYPE
     Dosage: 5 MG QD PO
     Route: 048
     Dates: start: 20060325, end: 20060331
  2. NAMENDA [Suspect]
     Indication: DEMENTIA ALZHEIMER'S TYPE
     Dosage: 5 MG BID PO
     Route: 048
     Dates: start: 20060401, end: 20060402
  3. DESYREL [Concomitant]
  4. SEROQUEL [Concomitant]
  5. ASPIRIN [Concomitant]
  6. BUMEX [Concomitant]
  7. TYLENOL (CAPLET) [Concomitant]
  8. CARAFATE [Concomitant]
  9. FOLIC ACID [Concomitant]
  10. VITAMIN B-12 [Concomitant]
  11. CALCIUM CARBONATE [Concomitant]

REACTIONS (5)
  - CONFUSIONAL STATE [None]
  - CONSTIPATION [None]
  - CONTUSION [None]
  - FALL [None]
  - GAIT DISTURBANCE [None]
